FAERS Safety Report 20032334 (Version 1)
Quarter: 2021Q4

REPORT INFORMATION
  Report Type: Spontaneous
  Country: NL (occurrence: NL)
  Receive Date: 20211103
  Receipt Date: 20211103
  Transmission Date: 20220303
  Serious: Yes (Other)
  Sender: FDA-Public Use
  Company Number: NL-ABBVIE-21K-114-4144107-00

PATIENT
  Sex: Male
  Weight: 184 kg

DRUGS (1)
  1. VALPROATE SODIUM [Suspect]
     Active Substance: VALPROATE SODIUM
     Indication: Partial seizures
     Dosage: 1X 3X 500 MG / DAY
     Route: 065
     Dates: start: 20060101

REACTIONS (2)
  - Diabetes mellitus [Unknown]
  - Product counterfeit [Unknown]
